FAERS Safety Report 15941096 (Version 3)
Quarter: 2019Q1

REPORT INFORMATION
  Report Type: Spontaneous
  Country: US (occurrence: US)
  Receive Date: 20190208
  Receipt Date: 20190319
  Transmission Date: 20190417
  Serious: Yes (Hospitalization)
  Sender: FDA-Public Use
  Company Number: US-NOVOPROD-645178

PATIENT
  Age: 30 Year
  Sex: Female
  Weight: 61 kg

DRUGS (4)
  1. NOVOLOG [Suspect]
     Active Substance: INSULIN ASPART
     Dosage: SLIDING SCALE
     Route: 058
     Dates: start: 2009
  2. NOVOLOG [Suspect]
     Active Substance: INSULIN ASPART
     Indication: TYPE 1 DIABETES MELLITUS
     Dosage: SLIDING SCALE
     Route: 058
     Dates: start: 2009
  3. NUVARING [Concomitant]
     Active Substance: ETHINYL ESTRADIOL\ETONOGESTREL
     Indication: CONTRACEPTION
     Dosage: UNK
     Route: 065
  4. NOVOLOG [Suspect]
     Active Substance: INSULIN ASPART
     Dosage: SLIDING SCALE
     Route: 058
     Dates: start: 2009

REACTIONS (2)
  - Product quality issue [Recovered/Resolved]
  - Diabetic ketoacidosis [Recovered/Resolved]

NARRATIVE: CASE EVENT DATE: 20190127
